FAERS Safety Report 9288496 (Version 2)
Quarter: 2013Q4

REPORT INFORMATION
  Report Type: Spontaneous
  Country: JP (occurrence: JP)
  Receive Date: 20130514
  Receipt Date: 20131024
  Transmission Date: 20140711
  Serious: Yes (Hospitalization, Disabling)
  Sender: FDA-Public Use
  Company Number: PHHY2013JP041353

PATIENT
  Age: 69 Year
  Sex: Male
  Weight: 67.9 kg

DRUGS (4)
  1. NEORAL [Suspect]
     Indication: PROPHYLAXIS AGAINST TRANSPLANT REJECTION
     Dosage: 6 MG/KG, UNK
     Route: 048
     Dates: start: 20130113
  2. NEORAL [Suspect]
     Dosage: 3 MG/KG, UNK
     Route: 048
  3. PREDNISOLONE [Suspect]
     Indication: RENAL TRANSPLANT
  4. MIZORIBINE [Concomitant]
     Route: 048

REACTIONS (2)
  - Prostate cancer [Recovering/Resolving]
  - Chronic allograft nephropathy [Not Recovered/Not Resolved]
